FAERS Safety Report 6620742-7 (Version None)
Quarter: 2010Q1

REPORT INFORMATION
  Report Type: 
  Country: None (occurrence: None)
  Receive Date: 20100309
  Receipt Date: 20100217
  Transmission Date: 20100710
  Serious: Yes (Hospitalization)
  Sender: FDA-Public Use
  Company Number: US-ROCHE-685256

PATIENT
  Sex: Male
  Weight: 114.3 kg

DRUGS (12)
  1. BEVACIZUMAB [Suspect]
     Indication: NON-SMALL CELL LUNG CANCER
     Route: 042
     Dates: start: 20100111
  2. BEVACIZUMAB [Suspect]
     Route: 042
     Dates: start: 20100202
  3. PEMETREXED [Suspect]
     Indication: NON-SMALL CELL LUNG CANCER
     Route: 042
     Dates: start: 20100111
  4. PEMETREXED [Suspect]
     Route: 042
     Dates: start: 20100202
  5. CARBOPLATIN [Suspect]
     Indication: NON-SMALL CELL LUNG CANCER
     Route: 042
     Dates: start: 20100111
  6. CARBOPLATIN [Suspect]
     Route: 042
     Dates: start: 20100202
  7. AVANDIA [Concomitant]
     Route: 048
  8. COREG [Concomitant]
     Route: 048
  9. AMARYL [Concomitant]
     Route: 048
  10. LOTREL [Concomitant]
     Dosage: 5/20 MG PO QD.
     Route: 048
  11. PROCHLORPERAZINE [Concomitant]
     Dosage: PRN NAUSEA
     Route: 065
  12. FOLIC ACID [Concomitant]
     Route: 048

REACTIONS (6)
  - ARRHYTHMIA [None]
  - ASTHENIA [None]
  - BLOOD PRESSURE FLUCTUATION [None]
  - DIZZINESS [None]
  - EPISTAXIS [None]
  - FATIGUE [None]
